FAERS Safety Report 5201130-7 (Version None)
Quarter: 2007Q1

REPORT INFORMATION
  Report Type: 
  Country: None (occurrence: None)
  Receive Date: 20070103
  Receipt Date: 20061219
  Transmission Date: 20070707
  Serious: Yes (Hospitalization)
  Sender: FDA-Public Use
  Company Number: 233613

PATIENT
  Age: 71 Year
  Sex: Female

DRUGS (4)
  1. AVASTIN [Suspect]
     Indication: COLORECTAL CANCER
     Dosage: 300 MG, Q3W, INTRAVENOUS
     Route: 042
     Dates: start: 20060912, end: 20061128
  2. OXALIPLATIN [Suspect]
     Indication: COLORECTAL CANCER
     Dosage: 140 MG, Q3W, INTRAVENOUS
     Route: 042
     Dates: start: 20060912, end: 20061128
  3. CAPECITABINE (CAPECITABINE) [Suspect]
     Indication: COLORECTAL CANCER
     Dosage: 5300 MG, ORAL
     Route: 048
     Dates: start: 20060912, end: 20061128
  4. ONDANSETRON [Concomitant]

REACTIONS (7)
  - ARTHRALGIA [None]
  - CONSTIPATION [None]
  - HERPES ZOSTER [None]
  - HYPERCHLORHYDRIA [None]
  - HYPOKALAEMIA [None]
  - HYPOMAGNESAEMIA [None]
  - NAUSEA [None]
